FAERS Safety Report 12328811 (Version 3)
Quarter: 2016Q3

REPORT INFORMATION
  Report Type: Spontaneous
  Country: US (occurrence: US)
  Receive Date: 20160503
  Receipt Date: 20160808
  Transmission Date: 20161109
  Serious: No
  Sender: FDA-Public Use
  Company Number: US-BEH-2015050921

PATIENT
  Age: 77 Year
  Sex: Female
  Weight: 96 kg

DRUGS (17)
  1. MACRODANTIN [Concomitant]
     Active Substance: NITROFURANTOIN
  2. DENAVIR [Concomitant]
     Active Substance: PENCICLOVIR
  3. HIZENTRA [Suspect]
     Active Substance: HUMAN IMMUNOGLOBULIN G
     Indication: CONGENITAL HYPOGAMMAGLOBULINAEMIA
     Route: 058
  4. ACULAR EYE DROPS [Concomitant]
  5. HYZAAR [Concomitant]
     Active Substance: HYDROCHLOROTHIAZIDE\LOSARTAN POTASSIUM
  6. XALATAN [Concomitant]
     Active Substance: LATANOPROST
  7. HIZENTRA [Suspect]
     Active Substance: HUMAN IMMUNOGLOBULIN G
     Route: 058
  8. EPIPEN [Concomitant]
     Active Substance: EPINEPHRINE
  9. COZAAR [Concomitant]
     Active Substance: LOSARTAN POTASSIUM
  10. VENTOLIN HFA [Concomitant]
     Active Substance: ALBUTEROL SULFATE
  11. LANTUS [Concomitant]
     Active Substance: INSULIN GLARGINE
  12. VITAMIN B12 [Concomitant]
     Active Substance: CYANOCOBALAMIN
  13. NITROGLYCERIN. [Concomitant]
     Active Substance: NITROGLYCERIN
  14. CLEOCIN [Concomitant]
     Active Substance: CLINDAMYCIN PHOSPHATE
  15. VITAMIN D2 [Concomitant]
     Active Substance: ERGOCALCIFEROL
  16. ACETAMINOPHEN. [Concomitant]
     Active Substance: ACETAMINOPHEN
  17. CORTISONE CREAM [Concomitant]

REACTIONS (9)
  - Influenza [Unknown]
  - Malabsorption from administration site [Unknown]
  - Asthma [Unknown]
  - Hypersensitivity [Unknown]
  - Administration site pain [Unknown]
  - Gastric disorder [Unknown]
  - Skin discolouration [Unknown]
  - Administration site swelling [Unknown]
  - Administration site pruritus [Unknown]

NARRATIVE: CASE EVENT DATE: 201501
